FAERS Safety Report 11793015 (Version 1)
Quarter: 2015Q4

REPORT INFORMATION
  Report Type: Spontaneous
  Country: US (occurrence: None)
  Receive Date: 20151201
  Receipt Date: 20151201
  Transmission Date: 20160305
  Serious: No
  Sender: FDA-Public Use
  Company Number: None

PATIENT
  Age: 69 Year
  Sex: Female
  Weight: 57.15 kg

DRUGS (3)
  1. LUMIGAN [Suspect]
     Active Substance: BIMATOPROST
     Indication: GLAUCOMA
     Dosage: BEDTIME, 1 DROP EACH EYE AT NIGHT, EYE DROP.
     Dates: start: 20151023, end: 20151029
  2. MECLAZINE [Concomitant]
  3. HYDROCHLOROTHIAZIDE. [Concomitant]
     Active Substance: HYDROCHLOROTHIAZIDE

REACTIONS (3)
  - Vision blurred [None]
  - Atrial fibrillation [None]
  - Headache [None]

NARRATIVE: CASE EVENT DATE: 20151024
